FAERS Safety Report 10484764 (Version 1)
Quarter: 2014Q3

REPORT INFORMATION
  Report Type: Spontaneous
  Country: AU (occurrence: AU)
  Receive Date: 20140930
  Receipt Date: 20140930
  Transmission Date: 20150326
  Serious: Yes (Hospitalization)
  Sender: FDA-Public Use
  Company Number: AU-AMGEN-AUSSP2014057369

PATIENT
  Age: 71 Year
  Sex: Female

DRUGS (15)
  1. ESCITALOPRAM [Concomitant]
     Active Substance: ESCITALOPRAM OXALATE
  2. MOXONIDINE [Concomitant]
     Active Substance: MOXONIDINE
  3. PARACETAMOL [Concomitant]
     Active Substance: ACETAMINOPHEN
  4. DOMPERIDONE [Concomitant]
     Active Substance: DOMPERIDONE
  5. ATENOLOL. [Concomitant]
     Active Substance: ATENOLOL
  6. ASPIRIN                            /00002701/ [Concomitant]
     Active Substance: ASPIRIN
  7. OLMESARTAN [Concomitant]
     Active Substance: OLMESARTAN
  8. EZETIMIBE AND SIMVASTATIN [Concomitant]
     Active Substance: EZETIMIBE\SIMVASTATIN
  9. PRAZOSIN HCL [Concomitant]
     Active Substance: PRAZOSIN HYDROCHLORIDE
  10. PROLIA [Suspect]
     Active Substance: DENOSUMAB
     Indication: PRODUCT USED FOR UNKNOWN INDICATION
     Dosage: 60 MG, CYCLICAL
     Route: 058
     Dates: end: 20131225
  11. ESOMEPRAZOL                        /01479302/ [Concomitant]
  12. METFORMIN HCL [Concomitant]
     Active Substance: METFORMIN HYDROCHLORIDE
  13. DIAZEPAM. [Concomitant]
     Active Substance: DIAZEPAM
  14. LERCANIDIPINE HCL [Concomitant]
     Active Substance: LERCANIDIPINE HYDROCHLORIDE
  15. HYDROMORPHONE HCL [Concomitant]
     Active Substance: HYDROMORPHONE HYDROCHLORIDE

REACTIONS (1)
  - Hypocalcaemia [Recovered/Resolved]

NARRATIVE: CASE EVENT DATE: 20140129
